FAERS Safety Report 8565736-X (Version None)
Quarter: 2012Q3

REPORT INFORMATION
  Report Type: 
  Country: None (occurrence: None)
  Receive Date: 20120803
  Receipt Date: 20120228
  Transmission Date: 20120928
  Serious: No
  Sender: FDA-Public Use
  Company Number: US-ABBOTT-10P-163-0638152-00

PATIENT
  Age: 67 Year
  Sex: Female

DRUGS (5)
  1. NIASPAN [Suspect]
     Indication: HIGH DENSITY LIPOPROTEIN DECREASED
     Dosage: AT BEDTIME
     Route: 048
     Dates: start: 20100101
  2. ASPIRIN [Concomitant]
     Indication: FLUSHING
     Dosage: AT BEDTIME
     Route: 048
  3. LIPITOR [Concomitant]
     Indication: PRODUCT USED FOR UNKNOWN INDICATION
     Dosage: AT BEDTIME
  4. ASPIRIN [Concomitant]
     Indication: PROPHYLAXIS
  5. NIASPAN [Suspect]
     Indication: APOLIPOPROTEIN B INCREASED

REACTIONS (6)
  - FEELING HOT [None]
  - PARAESTHESIA [None]
  - CHEST PAIN [None]
  - FLUSHING [None]
  - DYSPEPSIA [None]
  - OEDEMA PERIPHERAL [None]
